FAERS Safety Report 20044664 (Version 2)
Quarter: 2022Q2

REPORT INFORMATION
  Report Type: Report from Study
  Country: BR (occurrence: None)
  Receive Date: 20211108
  Receipt Date: 20220505
  Transmission Date: 20220720
  Serious: Yes (Hospitalization, Other)
  Sender: FDA-Public Use
  Company Number: BR-Merck Healthcare KGaA-9277522

PATIENT
  Age: 29 Year
  Sex: Female

DRUGS (2)
  1. REBIF [Suspect]
     Active Substance: INTERFERON BETA-1A
     Indication: Multiple sclerosis
     Dates: start: 20181107, end: 20190702
  2. REBIF [Suspect]
     Active Substance: INTERFERON BETA-1A
     Dates: start: 20190703, end: 20200710

REACTIONS (6)
  - Caesarean section [Recovered/Resolved]
  - Complication of delivery [Unknown]
  - Foetal malposition [Unknown]
  - Suppressed lactation [Unknown]
  - Maternal exposure during pregnancy [Recovered/Resolved]
  - Live birth [Recovered/Resolved]

NARRATIVE: CASE EVENT DATE: 20200501
